FAERS Safety Report 10078343 (Version 1)
Quarter: 2014Q1

REPORT INFORMATION
  Report Type: Spontaneous
  Country: US (occurrence: None)
  Receive Date: 20140325
  Receipt Date: 20140325
  Transmission Date: 20141002
  Serious: Yes (Other)
  Sender: FDA-Public Use
  Company Number: 2014SA028709

PATIENT
  Age: 49 Year
  Sex: Female
  Weight: 63.5 kg

DRUGS (3)
  1. AUBAGIO [Suspect]
     Indication: MULTIPLE SCLEROSIS
     Route: 048
     Dates: start: 20140221, end: 20140226
  2. CLONAZEPAM [Concomitant]
  3. CITALOPRAM [Concomitant]

REACTIONS (10)
  - Pain [None]
  - Pain [None]
  - Tongue disorder [None]
  - Drug hypersensitivity [None]
  - Diarrhoea [None]
  - Blister [None]
  - Influenza like illness [None]
  - Multiple sclerosis relapse [None]
  - Swollen tongue [None]
  - Throat tightness [None]
